FAERS Safety Report 5081541-3 (Version None)
Quarter: 2006Q3

REPORT INFORMATION
  Report Type: 
  Country: None (occurrence: None)
  Receive Date: 20060811
  Receipt Date: 20060801
  Transmission Date: 20061208
  Serious: Yes (Death)
  Sender: FDA-Public Use
  Company Number: HQWYE636601AUG06

PATIENT
  Age: 17 Year
  Sex: Female

DRUGS (1)
  1. ADVIL [Suspect]
     Indication: DRUG USE FOR UNKNOWN INDICATION
     Dosage: APPROXIMATELY 200 GRAMS, ORAL
     Route: 048

REACTIONS (12)
  - BLOOD GLUCOSE DECREASED [None]
  - BODY TEMPERATURE DECREASED [None]
  - DISSEMINATED INTRAVASCULAR COAGULATION [None]
  - DRUG SCREEN POSITIVE [None]
  - DRUG TOXICITY [None]
  - HEPATOTOXICITY [None]
  - LOSS OF CONSCIOUSNESS [None]
  - METABOLIC ACIDOSIS [None]
  - OVERDOSE [None]
  - RENAL FAILURE [None]
  - THROMBOCYTOPENIA [None]
  - VOMITING [None]
